FAERS Safety Report 10269515 (Version 2)
Quarter: 2014Q3

REPORT INFORMATION
  Report Type: Spontaneous
  Country: US (occurrence: US)
  Receive Date: 20140701
  Receipt Date: 20140708
  Transmission Date: 20150326
  Serious: No
  Sender: FDA-Public Use
  Company Number: US-BIOGENIDEC-2014BI063118

PATIENT
  Sex: Female

DRUGS (2)
  1. COPAXONE [Concomitant]
     Active Substance: GLATIRAMER ACETATE
  2. AVONEX [Suspect]
     Active Substance: INTERFERON BETA-1A
     Indication: MULTIPLE SCLEROSIS
     Route: 030
     Dates: start: 20050604, end: 20051008

REACTIONS (5)
  - Influenza like illness [Recovered/Resolved]
  - Drug intolerance [Unknown]
  - Lower extremity mass [Unknown]
  - Depression [Not Recovered/Not Resolved]
  - Chills [Recovered/Resolved]
